FAERS Safety Report 8155450-7 (Version None)
Quarter: 2012Q1

REPORT INFORMATION
  Report Type: 
  Country: None (occurrence: None)
  Receive Date: 20120222
  Receipt Date: 20120214
  Transmission Date: 20120608
  Serious: Yes (Hospitalization, Other)
  Sender: FDA-Public Use
  Company Number: DE-BAYER-2012-005304

PATIENT
  Age: 42 Year
  Sex: Female
  Weight: 79 kg

DRUGS (4)
  1. SIMVASTATIN [Concomitant]
     Dosage: 20 MG, QD
  2. ASPIRIN [Concomitant]
     Dosage: 100 MG, QD
  3. MIRENA [Suspect]
     Indication: PRODUCT USED FOR UNKNOWN INDICATION
     Dosage: UNK
     Route: 015
     Dates: end: 20101101
  4. LISINOPRIL [Concomitant]
     Dosage: 20 MG, QD

REACTIONS (4)
  - NAUSEA [None]
  - VERTIGO [None]
  - CEREBELLAR INFARCTION [None]
  - VOMITING [None]
